FAERS Safety Report 5331567-7 (Version None)
Quarter: 2007Q2

REPORT INFORMATION
  Report Type: 
  Country: None (occurrence: None)
  Receive Date: 20070522
  Receipt Date: 20070510
  Transmission Date: 20071010
  Serious: Yes (Death, Life-Threatening)
  Sender: FDA-Public Use
  Company Number: JP-PFIZER INC-2007017659

PATIENT
  Sex: Female

DRUGS (9)
  1. ZYVOX [Suspect]
     Indication: ENTEROCOCCAL INFECTION
     Route: 042
     Dates: start: 20070219, end: 20070227
  2. PRODIF [Suspect]
     Indication: SEPSIS
     Route: 042
     Dates: start: 20070223, end: 20070309
  3. MEROPEN [Concomitant]
     Indication: SEPSIS
     Route: 042
     Dates: start: 20070125, end: 20070312
  4. CLINDAMYCIN HCL [Concomitant]
     Indication: SEPSIS
     Route: 042
     Dates: start: 20070219, end: 20070228
  5. GASTER [Concomitant]
     Indication: GASTRITIS
     Route: 042
     Dates: start: 20070217, end: 20070321
  6. AMIKACIN SULFATE [Concomitant]
     Route: 042
     Dates: start: 20070125, end: 20070205
  7. TARGOCID [Concomitant]
     Route: 042
     Dates: start: 20070207, end: 20070219
  8. PRODIF [Concomitant]
     Route: 042
     Dates: start: 20070223, end: 20070309
  9. TOBRACIN [Concomitant]
     Route: 042
     Dates: start: 20070303, end: 20070309

REACTIONS (2)
  - GALLBLADDER CANCER [None]
  - PLATELET COUNT DECREASED [None]
